FAERS Safety Report 4589205-7 (Version None)
Quarter: 2005Q1

REPORT INFORMATION
  Report Type: 
  Country: None (occurrence: None)
  Receive Date: 20050215
  Receipt Date: 20050215
  Transmission Date: 20050727
  Serious: No
  Sender: FDA-Public Use
  Company Number: None

PATIENT
  Sex: Female
  Weight: 54.4316 kg

DRUGS (2)
  1. PROZAC [Suspect]
     Indication: DEPRESSION
     Dosage: 80 MG Q AM ORAL
     Route: 048
     Dates: start: 20041201, end: 20050208
  2. BUSPAR [Suspect]
     Indication: ANXIETY
     Dosage: 10  BID ORAL
     Route: 048
     Dates: start: 20041201, end: 20050214

REACTIONS (3)
  - CHILLS [None]
  - HYPERHIDROSIS [None]
  - RASH [None]
